FAERS Safety Report 22144490 (Version 1)
Quarter: 2023Q1

REPORT INFORMATION
  Report Type: Spontaneous
  Country: FR (occurrence: FR)
  Receive Date: 20230328
  Receipt Date: 20230328
  Transmission Date: 20230418
  Serious: Yes (Hospitalization, Other)
  Sender: FDA-Public Use
  Company Number: FR-AFSSAPS-ST2023000330

PATIENT
  Age: 40 Year
  Sex: Female

DRUGS (3)
  1. DULOXETINE [Suspect]
     Active Substance: DULOXETINE
     Indication: Relapsing-remitting multiple sclerosis
     Dosage: 90 MILLIGRAM, ONCE A DAY(60-0-30 MG)
     Route: 048
     Dates: start: 20220624, end: 20220909
  2. TEGRETOL [Suspect]
     Active Substance: CARBAMAZEPINE
     Indication: Relapsing-remitting multiple sclerosis
     Dosage: 400 MILLIGRAM, ONCE A DAY(200MGX2/J)
     Route: 048
     Dates: start: 20220810, end: 20220906
  3. RIVOTRIL [Concomitant]
     Active Substance: CLONAZEPAM
     Indication: Product used for unknown indication
     Dosage: UNK
     Route: 065

REACTIONS (1)
  - Drug reaction with eosinophilia and systemic symptoms [Recovered/Resolved]

NARRATIVE: CASE EVENT DATE: 20220904
